FAERS Safety Report 4602212-0 (Version None)
Quarter: 2005Q2

REPORT INFORMATION
  Report Type: 
  Country: None (occurrence: None)
  Receive Date: 20050215
  Receipt Date: 20041215
  Transmission Date: 20051028
  Serious: Yes (Life-Threatening)
  Sender: FDA-Public Use
  Company Number: MC200400904

PATIENT
  Age: 73 Year
  Sex: Female

DRUGS (3)
  1. ANGIOMAX [Suspect]
     Dates: start: 20041215, end: 20041215
  2. PLAVIX [Concomitant]
  3. HEPARIN [Concomitant]

REACTIONS (1)
  - GASTROINTESTINAL HAEMORRHAGE [None]
